FAERS Safety Report 6190398-9 (Version None)
Quarter: 2009Q2

REPORT INFORMATION
  Report Type: 
  Country: None (occurrence: None)
  Receive Date: 20090514
  Receipt Date: 20090512
  Transmission Date: 20091009
  Serious: Yes (Hospitalization)
  Sender: FDA-Public Use
  Company Number: B0573801A

PATIENT
  Sex: Male

DRUGS (1)
  1. AUGMENTIN ES-600 [Suspect]
     Indication: DRUG USE FOR UNKNOWN INDICATION
     Dosage: 4ML TWICE PER DAY
     Route: 048
     Dates: start: 20090409, end: 20090415

REACTIONS (1)
  - DERMATITIS ALLERGIC [None]
